FAERS Safety Report 4414043-5 (Version None)
Quarter: 2004Q3

REPORT INFORMATION
  Report Type: 
  Country: None (occurrence: None)
  Receive Date: 20040803
  Receipt Date: 20040719
  Transmission Date: 20050211
  Serious: Yes (Other)
  Sender: FDA-Public Use
  Company Number: NL-GLAXOSMITHKLINE-B0340086A

PATIENT
  Age: 83 Year
  Sex: Male
  Weight: 60 kg

DRUGS (3)
  1. AVANDIA [Suspect]
     Indication: DIABETES MELLITUS NON-INSULIN-DEPENDENT
     Dosage: 4MG PER DAY
     Dates: start: 20031114, end: 20040616
  2. GLICLAZIDE [Concomitant]
     Dosage: 80MG THREE TIMES PER DAY
     Dates: start: 20010103
  3. METFORMIN HCL [Concomitant]
     Dosage: 850MG THREE TIMES PER DAY
     Dates: start: 20040204

REACTIONS (2)
  - ANAEMIA [None]
  - LUNG CREPITATION [None]
